FAERS Safety Report 4711778-1 (Version None)
Quarter: 2005Q2

REPORT INFORMATION
  Report Type: 
  Country: None (occurrence: None)
  Receive Date: 20050629
  Receipt Date: 20050527
  Transmission Date: 20051028
  Serious: No
  Sender: FDA-Public Use
  Company Number: 05P-163-0301820-00

PATIENT
  Age: 56 Year
  Sex: Male
  Weight: 108 kg

DRUGS (10)
  1. HUMIRA [Suspect]
     Indication: RHEUMATOID ARTHRITIS
     Dosage: 40 MG, 1 IN 2 WK, SUBCUTANEOUS
     Route: 058
     Dates: start: 20050510
  2. CELECOXIB [Concomitant]
  3. COUMADIN [Concomitant]
  4. ZOLPIDEM TARTRATE [Concomitant]
  5. PRENISONE [Concomitant]
  6. SINGULAIR [Concomitant]
  7. RANITIDINE HYDROCHLORIDE [Concomitant]
  8. ATENOLOL [Concomitant]
  9. FOLIC ACID [Concomitant]
  10. MULTIVITAMIN [Concomitant]

REACTIONS (1)
  - INTERNATIONAL NORMALISED RATIO INCREASED [None]
